FAERS Safety Report 6875432-2 (Version None)
Quarter: 2010Q3

REPORT INFORMATION
  Report Type: 
  Country: None (occurrence: None)
  Receive Date: 20100727
  Receipt Date: 20100714
  Transmission Date: 20110219
  Serious: Yes (Hospitalization)
  Sender: FDA-Public Use
  Company Number: JP-PFIZER INC-2010086154

PATIENT
  Sex: Female

DRUGS (3)
  1. AZULFIDINE [Suspect]
     Route: 048
  2. ETANERCEPT [Suspect]
     Dosage: UNK
     Route: 058
  3. RIMATIL [Concomitant]
     Route: 048

REACTIONS (1)
  - PNEUMONIA MYCOPLASMAL [None]
